FAERS Safety Report 8228551-2 (Version None)
Quarter: 2012Q1

REPORT INFORMATION
  Report Type: 
  Country: None (occurrence: None)
  Receive Date: 20120322
  Receipt Date: 20110420
  Transmission Date: 20120608
  Serious: Yes (Hospitalization)
  Sender: FDA-Public Use
  Company Number: US-BRISTOL-MYERS SQUIBB COMPANY-15687288

PATIENT
  Age: 6 Decade
  Sex: Male

DRUGS (1)
  1. ERBITUX [Suspect]
     Dosage: 1 DF:4-7 CC

REACTIONS (5)
  - URINARY INCONTINENCE [None]
  - LOSS OF CONSCIOUSNESS [None]
  - HEART RATE INCREASED [None]
  - RESPIRATORY ARREST [None]
  - ABDOMINAL PAIN UPPER [None]
